FAERS Safety Report 4591662-7 (Version None)
Quarter: 2005Q1

REPORT INFORMATION
  Report Type: 
  Country: None (occurrence: None)
  Receive Date: 20050218
  Receipt Date: 20050204
  Transmission Date: 20050727
  Serious: Yes (Hospitalization, Other)
  Sender: FDA-Public Use
  Company Number: 2005023375

PATIENT
  Age: 67 Year
  Sex: Female
  Weight: 81.6475 kg

DRUGS (6)
  1. ZITHROMAX [Suspect]
     Indication: BRONCHITIS
     Dosage: 250 MG (250 MG,1 IN 1 D),ORAL
     Route: 048
     Dates: start: 19970101
  2. CLINDAMYCIN (CLINDAMYCIN) [Suspect]
     Indication: CELLULITIS
     Dosage: ORAL
     Route: 048
     Dates: start: 20040801, end: 20040801
  3. . [Concomitant]
  4. VANCOMYCIN [Suspect]
     Indication: CELLULITIS
     Dosage: INTRAVENOUS
     Route: 042
     Dates: start: 20040801
  5. LEVOTHYROXINE SODIUM [Suspect]
     Indication: HYPOTHYROIDISM
     Dosage: ORAL
     Route: 048
     Dates: end: 20020101
  6. CLONAZEPAM [Concomitant]

REACTIONS (15)
  - BONE PAIN [None]
  - CELLULITIS [None]
  - CHILLS [None]
  - DRUG HYPERSENSITIVITY [None]
  - FALL [None]
  - HYPERTHYROIDISM [None]
  - HYPOTHYROIDISM [None]
  - JARISCH-HERXHEIMER REACTION [None]
  - NEOPLASM [None]
  - PAIN [None]
  - PYREXIA [None]
  - RASH [None]
  - SKIN LACERATION [None]
  - UPPER LIMB FRACTURE [None]
  - WEIGHT INCREASED [None]
